FAERS Safety Report 22173258 (Version 1)
Quarter: 2023Q2

REPORT INFORMATION
  Report Type: Spontaneous
  Country: ES (occurrence: ES)
  Receive Date: 20230404
  Receipt Date: 20230404
  Transmission Date: 20230722
  Serious: Yes (Death)
  Sender: FDA-Public Use
  Company Number: None

PATIENT
  Age: 58 Year
  Sex: Female
  Weight: 125 kg

DRUGS (3)
  1. LINEZOLID [Suspect]
     Active Substance: LINEZOLID
     Indication: Product used for unknown indication
     Dosage: LINEZOLID (1279A)
     Route: 065
     Dates: start: 20210607
  2. DEXAMETHASONE [Suspect]
     Active Substance: DEXAMETHASONE
     Indication: Product used for unknown indication
     Dosage: DEXAMETASONA (722A)
     Route: 065
     Dates: start: 20210520
  3. TOCILIZUMAB [Suspect]
     Active Substance: TOCILIZUMAB
     Indication: Product used for unknown indication
     Dosage: TOCILIZUMAB (8289A), 2 DOSES SEPARATED 4 DAYS
     Route: 065
     Dates: start: 20210524, end: 20210528

REACTIONS (6)
  - Thrombocytopenia [Fatal]
  - Hypertransaminasaemia [Fatal]
  - Fibrin D dimer increased [Fatal]
  - Blood fibrinogen decreased [Fatal]
  - Aspergillus infection [Fatal]
  - Disseminated intravascular coagulation [Fatal]

NARRATIVE: CASE EVENT DATE: 20210526
